FAERS Safety Report 12167800 (Version 1)
Quarter: 2016Q1

REPORT INFORMATION
  Report Type: Spontaneous
  Country: US (occurrence: None)
  Receive Date: 20160309
  Receipt Date: 20160309
  Transmission Date: 20160526
  Serious: Yes (Life-Threatening, Disabling)
  Sender: FDA-Public Use
  Company Number: None

PATIENT
  Age: 55 Year
  Sex: Male
  Weight: 62.6 kg

DRUGS (20)
  1. IBRUPROPHEN [Suspect]
     Active Substance: IBUPROFEN
  2. RANITIDINE [Suspect]
     Active Substance: RANITIDINE\RANITIDINE HYDROCHLORIDE
  3. PEG 3350 ELECTRO SOL [Concomitant]
  4. VITAMIN E [Concomitant]
     Active Substance: .ALPHA.-TOCOPHEROL
  5. EXTRA STRENGTH QPAP [Suspect]
     Active Substance: ACETAMINOPHEN
  6. FLUCONAZOLE. [Concomitant]
     Active Substance: FLUCONAZOLE
  7. VITAMIN B-1 [Concomitant]
     Active Substance: THIAMINE
  8. RISPERDAL [Suspect]
     Active Substance: RISPERIDONE
     Indication: PAIN
     Dosage: 10 MG-800 MG ALL PILLS/CAPSULES ONE (1) PER DOSE ONCE/TWICE DAILY AT MEALS/W FLUID BY MOUTH
     Route: 048
     Dates: start: 19931211, end: 20150403
  9. ACETAMINOPHEN. [Suspect]
     Active Substance: ACETAMINOPHEN
  10. KOREAN GINSENG /01384001/ [Concomitant]
     Active Substance: ASIAN GINSENG
  11. FOLIC ACID. [Suspect]
     Active Substance: FOLIC ACID
  12. OYSCO 500 + D [Suspect]
     Active Substance: CALCIUM\CHOLECALCIFEROL
  13. COLON CLENZ [Concomitant]
     Active Substance: ALOE ARBORESCENS LEAF\BLACK WALNUT\ELM\FRANGULA PURSHIANA BARK\MAHONIA AQUIFOLIUM ROOT BARK\RHUBARB\RUMEX CRISPUS ROOT\SENNA LEAF\VALERIAN
  14. NAPROXEN. [Suspect]
     Active Substance: NAPROXEN
  15. ALLEGRA [Suspect]
     Active Substance: FEXOFENADINE HYDROCHLORIDE
  16. ASPRINS [Concomitant]
  17. PEPCID [Suspect]
     Active Substance: FAMOTIDINE
  18. CLINDAMYCIN [Suspect]
     Active Substance: CLINDAMYCIN\CLINDAMYCIN PHOSPHATE
  19. LAXATIVE PILL FORMS [Concomitant]
  20. MILK THISTLE [Concomitant]
     Active Substance: MILK THISTLE

REACTIONS (5)
  - Injection site abscess [None]
  - Musculoskeletal disorder [None]
  - Hypoaesthesia [None]
  - Tooth loss [None]
  - Blood disorder [None]

NARRATIVE: CASE EVENT DATE: 19931211
